FAERS Safety Report 20536996 (Version 1)
Quarter: 2022Q1

REPORT INFORMATION
  Report Type: Spontaneous
  Country: US (occurrence: None)
  Receive Date: 20220301
  Receipt Date: 20220301
  Transmission Date: 20220423
  Serious: Yes (Hospitalization)
  Sender: FDA-Public Use
  Company Number: None

PATIENT
  Sex: Female

DRUGS (5)
  1. MYCOPHENOLIC ACID [Suspect]
     Active Substance: MYCOPHENOLIC ACID
     Indication: Renal transplant
     Route: 048
     Dates: start: 20210721
  2. CODEINE POW PHOSPHAT [Concomitant]
  3. NYSTATIN CRE [Concomitant]
  4. TACROLIMUS [Concomitant]
  5. TACROLIMUS A [Concomitant]

REACTIONS (3)
  - Pyrexia [None]
  - Infection [None]
  - Diarrhoea [None]
